FAERS Safety Report 6186764-8 (Version None)
Quarter: 2009Q2

REPORT INFORMATION
  Report Type: 
  Country: None (occurrence: None)
  Receive Date: 20090512
  Receipt Date: 20090427
  Transmission Date: 20091009
  Serious: Yes (Hospitalization, Other)
  Sender: FDA-Public Use
  Company Number: BR-ROCHE-627897

PATIENT
  Sex: Female
  Weight: 65.5 kg

DRUGS (4)
  1. PEG-INTERFERON ALFA 2A (RO 25-8310) [Suspect]
     Indication: HEPATITIS C
     Route: 058
     Dates: start: 20080508, end: 20080604
  2. PEG-INTERFERON ALFA 2A (RO 25-8310) [Suspect]
     Route: 058
     Dates: start: 20080605, end: 20080918
  3. PEG-INTERFERON ALFA 2A (RO 25-8310) [Suspect]
     Route: 058
     Dates: start: 20080925, end: 20081009
  4. RIBAVIRIN [Suspect]
     Indication: HEPATITIS C
     Dosage: DOSE REPORTED AS 250 MG.
     Route: 048
     Dates: start: 20080508, end: 20081009

REACTIONS (9)
  - ANAEMIA [None]
  - ASCITES [None]
  - CARDIAC FAILURE CONGESTIVE [None]
  - CHROMATURIA [None]
  - DRUG INEFFECTIVE [None]
  - DYSPNOEA [None]
  - EPISTAXIS [None]
  - OEDEMA PERIPHERAL [None]
  - PULMONARY CONGESTION [None]
